FAERS Safety Report 6473807-7 (Version None)
Quarter: 2009Q4

REPORT INFORMATION
  Report Type: 
  Country: None (occurrence: None)
  Receive Date: 20091204
  Receipt Date: 20091201
  Transmission Date: 20100525
  Serious: Yes (Death)
  Sender: FDA-Public Use
  Company Number: DE-ROCHE-592271

PATIENT
  Sex: Female
  Weight: 56.4 kg

DRUGS (10)
  1. METHOXY POLYETHYLENE GLYCOL-EPOETIN BETA [Suspect]
     Indication: HYPERTENSIVE NEPHROPATHY
     Route: 058
     Dates: start: 20080605, end: 20080904
  2. TORSEMIDE [Concomitant]
     Dosage: DRUG NAME: TORASEMID 1A PHARMA
     Dates: start: 20080605
  3. PRAVASTATIN SODIUM [Concomitant]
     Dosage: DRUG NAME: PRAVASIN PROTECT 20 MG
     Dates: start: 20080605
  4. KAVERI [Concomitant]
     Dosage: FREQUENCY: PRN
     Dates: start: 20030731
  5. OXYBUTYNIN CHLORIDE [Concomitant]
     Dosage: DRUG NAME: OXYBUTININ 5
     Dates: start: 20071108
  6. OMEP [Concomitant]
     Dates: start: 20060330
  7. DEKRISTOL [Concomitant]
     Dosage: STRENGTH: 20000 IE
     Dates: start: 20060504
  8. METOPROLOL SUCCINATE [Concomitant]
     Dosage: DRUG: METOPROLOLSUCCINAT 1A; STRENGTH 47.5
     Dates: start: 20071108
  9. CARBAFLUX [Concomitant]
     Dates: start: 20071108
  10. L-THYROX [Concomitant]
     Dosage: DRUG NAME: L-THYROX 100
     Dates: start: 20080124

REACTIONS (2)
  - AORTIC VALVE STENOSIS [None]
  - CARDIAC FAILURE [None]
